FAERS Safety Report 5575787-5 (Version None)
Quarter: 2007Q4

REPORT INFORMATION
  Report Type: 
  Country: None (occurrence: None)
  Receive Date: 20071226
  Receipt Date: 20071218
  Transmission Date: 20080405
  Serious: Yes (Hospitalization)
  Sender: FDA-Public Use
  Company Number: SPV1-2007-05243

PATIENT
  Age: 65 Year
  Sex: Male

DRUGS (5)
  1. PENTASA [Suspect]
     Indication: COLITIS ULCERATIVE
     Dosage: 1000 MG, 3X/DAY;TID, ORAL
     Route: 048
     Dates: start: 20070919, end: 20071109
  2. PREDNISONE [Concomitant]
  3. GODAMED (ACETYLSALICYLIC ACID) [Concomitant]
  4. SIMVASTATIN [Concomitant]
  5. LISINOPRIL [Concomitant]

REACTIONS (6)
  - DYSKINESIA [None]
  - DYSPHONIA [None]
  - MUSCLE SPASMS [None]
  - MUSCULAR WEAKNESS [None]
  - MYOPIA [None]
  - TREMOR [None]
